FAERS Safety Report 4866759-4 (Version None)
Quarter: 2005Q4

REPORT INFORMATION
  Report Type: 
  Country: None (occurrence: None)
  Receive Date: 20051221
  Receipt Date: 20051208
  Transmission Date: 20060501
  Serious: Yes (Death, Other)
  Sender: FDA-Public Use
  Company Number: 2005162738

PATIENT
  Age: 75 Year
  Sex: Male

DRUGS (10)
  1. DIFLUCAN [Suspect]
     Indication: SYSTEMIC MYCOSIS
     Dosage: 200 MG (1 IN 1 D), ORAL
     Route: 048
     Dates: start: 20051018, end: 20051022
  2. ISONIAZID [Concomitant]
  3. RIMACTANE [Concomitant]
  4. STREPTOMYCIN SULFATE (STREPTOMYCIN) [Concomitant]
  5. MEROPEN (MEROPENEM) [Concomitant]
  6. FIRSTCIN (CEFOZOPRAN HYDROCHLORIDE) [Concomitant]
  7. ERYTHROCIN [Concomitant]
  8. MICAFUNGIN (MICAFUNGIN) [Suspect]
  9. PYDOXAL (PYRIDOXAL PHOSPHATE) [Concomitant]
  10. PURSENNID (SENNA LEAF) [Concomitant]

REACTIONS (17)
  - ANOREXIA [None]
  - BLOOD PRESSURE IMMEASURABLE [None]
  - BLOOD PRESSURE SYSTOLIC DECREASED [None]
  - CONDITION AGGRAVATED [None]
  - DEPRESSED LEVEL OF CONSCIOUSNESS [None]
  - HEART RATE DECREASED [None]
  - HEPATIC FUNCTION ABNORMAL [None]
  - HYPOGLYCAEMIA [None]
  - MYDRIASIS [None]
  - PRODUCTIVE COUGH [None]
  - PULMONARY TUBERCULOSIS [None]
  - PYREXIA [None]
  - RENAL IMPAIRMENT [None]
  - SMEAR SITE UNSPECIFIED ABNORMAL [None]
  - SYSTEMIC MYCOSIS [None]
  - THYROXINE FREE DECREASED [None]
  - TRI-IODOTHYRONINE DECREASED [None]
